FAERS Safety Report 6604699-0 (Version None)
Quarter: 2010Q1

REPORT INFORMATION
  Report Type: 
  Country: None (occurrence: None)
  Receive Date: 20100226
  Receipt Date: 20100126
  Transmission Date: 20100710
  Serious: No
  Sender: FDA-Public Use
  Company Number: US-BAYER-201012770NA

PATIENT
  Age: 56 Year
  Sex: Female

DRUGS (2)
  1. ULTRAVIST (PHARMACY BULK) [Suspect]
     Indication: COMPUTERISED TOMOGRAM ABDOMEN
     Dosage: LEFT ARM USING POWER INJECTOR @ AN INJECTION RATE OF 3.0 AND WARMER
     Route: 042
     Dates: start: 20100123, end: 20100123
  2. CONTRAST MEDIA [Concomitant]
     Indication: COMPUTERISED TOMOGRAM ABDOMEN
     Route: 048
     Dates: start: 20100123, end: 20100123

REACTIONS (1)
  - URTICARIA [None]
